FAERS Safety Report 7842425-8 (Version None)
Quarter: 2011Q4

REPORT INFORMATION
  Report Type: 
  Country: None (occurrence: None)
  Receive Date: 20111025
  Receipt Date: 20111018
  Transmission Date: 20120403
  Serious: Yes (Hospitalization, Other)
  Sender: FDA-Public Use
  Company Number: PHEH2011US01113

PATIENT
  Sex: Female

DRUGS (1)
  1. RECLAST [Suspect]
     Dosage: UNK UKN, UNK
     Route: 042
     Dates: start: 20100910

REACTIONS (17)
  - DEPRESSION [None]
  - ASTHMA [None]
  - NAUSEA [None]
  - DEHYDRATION [None]
  - RENAL PAIN [None]
  - FATIGUE [None]
  - GINGIVAL PAIN [None]
  - CONFUSIONAL STATE [None]
  - HYPERTENSION [None]
  - ALOPECIA [None]
  - BRONCHITIS [None]
  - DISORIENTATION [None]
  - VOMITING [None]
  - BONE PAIN [None]
  - HEADACHE [None]
  - BURNING SENSATION [None]
  - TOOTHACHE [None]
